FAERS Safety Report 8615175-8 (Version None)
Quarter: 2012Q3

REPORT INFORMATION
  Report Type: 
  Country: None (occurrence: None)
  Receive Date: 20120823
  Receipt Date: 20120815
  Transmission Date: 20120928
  Serious: Yes (Hospitalization, Other)
  Sender: FDA-Public Use
  Company Number: US-CELGENEUS-163-21880-12053384

PATIENT
  Sex: Male
  Weight: 86.169 kg

DRUGS (14)
  1. PREVACID [Concomitant]
     Dosage: 30 MILLIGRAM
     Route: 048
  2. DEXAMETHASONE [Concomitant]
     Dosage: 20 MILLIGRAM
     Route: 065
     Dates: start: 20120501
  3. HYDROCHLOROTHIAZIDE [Concomitant]
     Dosage: 25 MILLIGRAM
     Route: 048
  4. ACYCLOVIR [Concomitant]
     Dosage: 400 MILLIGRAM
     Route: 048
  5. ALLOPURINOL [Concomitant]
     Indication: GOUT
     Dosage: 100 MILLIGRAM
     Route: 048
  6. LISINOPRIL [Concomitant]
     Route: 065
  7. PLAQUENIL [Concomitant]
     Route: 065
  8. ASPIRIN [Concomitant]
     Indication: THROMBOSIS PROPHYLAXIS
     Dosage: 325 MILLIGRAM
     Route: 048
  9. REVLIMID [Suspect]
     Indication: MULTIPLE MYELOMA
     Dosage: 10 MILLIGRAM
     Route: 048
     Dates: start: 20120515
  10. DEXAMETHASONE [Concomitant]
     Dosage: 20 MILLIGRAM
     Route: 048
     Dates: start: 20120710
  11. VALTREX [Concomitant]
     Dosage: 500 MILLIGRAM
     Route: 065
  12. VITAMIN D [Concomitant]
     Dosage: 1000 UNITS
     Route: 048
  13. VITAMIN B-12 [Concomitant]
     Dosage: 100 MICROGRAM
     Route: 065
     Dates: start: 20120619, end: 20120731
  14. SYNTHROID [Concomitant]
     Dosage: 100 MICROGRAM
     Route: 048

REACTIONS (4)
  - RENAL FAILURE ACUTE [None]
  - RASH GENERALISED [None]
  - ANAEMIA [None]
  - SERUM SICKNESS [None]
